FAERS Safety Report 5978140-5 (Version None)
Quarter: 2008Q4

REPORT INFORMATION
  Report Type: 
  Country: None (occurrence: None)
  Receive Date: 20081126
  Receipt Date: 20081117
  Transmission Date: 20090506
  Serious: Yes (Other)
  Sender: FDA-Public Use
  Company Number: 430026K08USA

PATIENT
  Age: 49 Year
  Sex: Male

DRUGS (1)
  1. NOVANTRONE [Suspect]
     Indication: MULTIPLE SCLEROSIS
     Dosage: 1 IN 3 MONTHS, INTRAVENOUS
     Route: 042
     Dates: start: 20070612, end: 20070926

REACTIONS (4)
  - CHEST DISCOMFORT [None]
  - CHEST PAIN [None]
  - HEART VALVE INCOMPETENCE [None]
  - OEDEMA PERIPHERAL [None]
